FAERS Safety Report 12728190 (Version 1)
Quarter: 2016Q3

REPORT INFORMATION
  Report Type: Spontaneous
  Country: US (occurrence: US)
  Receive Date: 20160909
  Receipt Date: 20160909
  Transmission Date: 20161109
  Serious: No
  Sender: FDA-Public Use
  Company Number: US-BECTON DICKINSON-2016BDN00056

PATIENT
  Age: 56 Year
  Sex: Female
  Weight: 77.98 kg

DRUGS (2)
  1. VITAMIN D [Concomitant]
     Active Substance: CHOLECALCIFEROL
     Dosage: 2000 U, 1X/DAY
  2. CHLORAPREP WITH TINT [Suspect]
     Active Substance: CHLORHEXIDINE GLUCONATE\ISOPROPYL ALCOHOL
     Indication: INFECTION PROPHYLAXIS
     Dosage: UNK UNK, ONCE
     Route: 061
     Dates: start: 20160412, end: 20160412

REACTIONS (7)
  - Pruritus [Recovered/Resolved]
  - Product contamination [None]
  - Urticaria [None]
  - Needle issue [None]
  - Urticaria [Recovered/Resolved]
  - Pruritus generalised [None]
  - Reaction to preservatives [None]

NARRATIVE: CASE EVENT DATE: 20160412
